FAERS Safety Report 8273385-6 (Version None)
Quarter: 2012Q2

REPORT INFORMATION
  Report Type: 
  Country: None (occurrence: None)
  Receive Date: 20120411
  Receipt Date: 20120405
  Transmission Date: 20120825
  Serious: Yes (Other)
  Sender: FDA-Public Use
  Company Number: PHHY2012MX029753

PATIENT
  Sex: Female

DRUGS (7)
  1. ZOLEDRONOC ACID [Suspect]
     Indication: OSTEOPOROSIS
     Dosage: 5 MG, UNK
     Route: 042
     Dates: start: 20070301
  2. CLONAZEPAM [Concomitant]
     Dosage: 3 DF, DAILY
  3. ATEMPERATOR [Concomitant]
     Dosage: 200 MG, 5QD
  4. RISPERIDONE [Concomitant]
     Dosage: 1 MG, UNK
  5. AMARYL [Concomitant]
     Dosage: 4 MG, DAILY
  6. TEGRETOL-XR [Suspect]
     Dosage: 600 MG, DAILY
     Dates: start: 20081001
  7. CITALOPRAM HYDROBROMIDE [Concomitant]
     Dosage: 0.5 DF, UNK

REACTIONS (3)
  - FALL [None]
  - UPPER LIMB FRACTURE [None]
  - HIP FRACTURE [None]
